FAERS Safety Report 6144327-4 (Version None)
Quarter: 2009Q2

REPORT INFORMATION
  Report Type: 
  Country: None (occurrence: None)
  Receive Date: 20090406
  Receipt Date: 20090402
  Transmission Date: 20091009
  Serious: Yes (Other)
  Sender: FDA-Public Use
  Company Number: US-BRISTOL-MYERS SQUIBB COMPANY-14465322

PATIENT
  Age: 51 Year
  Sex: Male

DRUGS (15)
  1. ORENCIA [Suspect]
     Indication: RHEUMATOID ARTHRITIS
     Route: 042
     Dates: start: 20060801, end: 20060830
  2. HUMIRA [Concomitant]
     Route: 058
  3. ARAVA [Concomitant]
  4. LORCET-HD [Concomitant]
     Dosage: 1 DF = 10 UNITS NOT SPECIFIED
  5. ALLEGRA D 24 HOUR [Concomitant]
     Dosage: 1 DF = 60 MG- 120MG
  6. AVAPRO [Concomitant]
  7. PRAVACHOL [Concomitant]
  8. ASPIRIN [Concomitant]
  9. PLAVIX [Concomitant]
  10. NITROGLYCERIN [Concomitant]
     Route: 060
  11. XYZAL [Concomitant]
  12. NASACORT AQ [Concomitant]
     Route: 055
  13. TOPROL-XL [Concomitant]
  14. KENALOG [Concomitant]
     Dosage: STRENGTH: 0.025%
  15. DESONIDE [Concomitant]
     Dosage: CREAM 0.05%

REACTIONS (1)
  - CROHN'S DISEASE [None]
